FAERS Safety Report 15710320 (Version 4)
Quarter: 2020Q4

REPORT INFORMATION
  Report Type: Report from Study
  Country: JP (occurrence: JP)
  Receive Date: 20181211
  Receipt Date: 20201022
  Transmission Date: 20210113
  Serious: Yes (Hospitalization)
  Sender: FDA-Public Use
  Company Number: JP-EISAI MEDICAL RESEARCH-EC-2018-049023

PATIENT
  Age: 46 Year
  Sex: Male
  Weight: 51 kg

DRUGS (14)
  1. DEXALTIN [Concomitant]
     Active Substance: DEXAMETHASONE
     Indication: STOMATITIS
     Route: 061
     Dates: start: 20181121
  2. LENVATINIB [Suspect]
     Active Substance: LENVATINIB
     Route: 048
     Dates: end: 20190430
  3. LENVATINIB [Suspect]
     Active Substance: LENVATINIB
     Route: 048
     Dates: start: 20190522, end: 20190611
  4. AZUNOL GARGLE LIQUID [Concomitant]
     Indication: INFECTION PROPHYLAXIS
     Route: 050
     Dates: start: 20181124
  5. LENVATINIB [Suspect]
     Active Substance: LENVATINIB
     Indication: RENAL CELL CARCINOMA
     Route: 048
     Dates: start: 20181114, end: 20181206
  6. CORTRIL [Concomitant]
     Active Substance: HYDROCORTISONE
     Indication: ADRENAL INSUFFICIENCY
     Route: 048
     Dates: start: 20200826
  7. MYSER [Concomitant]
     Indication: ECZEMA
     Route: 062
     Dates: start: 20190710
  8. PEMBROLIZUMAB. [Suspect]
     Active Substance: PEMBROLIZUMAB
     Indication: RENAL CELL CARCINOMA
     Route: 041
     Dates: start: 20181114, end: 20181114
  9. RELVAR [Concomitant]
     Active Substance: FLUTICASONE FUROATE\VILANTEROL TRIFENATATE
     Indication: ASTHMA
     Route: 055
     Dates: start: 201803
  10. RELVAR [Concomitant]
     Active Substance: FLUTICASONE FUROATE\VILANTEROL TRIFENATATE
     Route: 055
     Dates: start: 20200320
  11. TRANEXAMIC ACID C [Concomitant]
     Active Substance: TRANEXAMIC ACID
     Indication: STOMATITIS
     Route: 048
     Dates: start: 20181128
  12. MAGNESIUM OXIDE. [Concomitant]
     Active Substance: MAGNESIUM OXIDE
     Indication: CONSTIPATION PROPHYLAXIS
     Route: 048
     Dates: start: 20180923
  13. ATARAX-P [Concomitant]
     Active Substance: HYDROXYZINE HYDROCHLORIDE
     Indication: RASH
     Route: 048
     Dates: start: 20181128
  14. ZYLORIC [Concomitant]
     Active Substance: ALLOPURINOL
     Indication: HYPERURICAEMIA
     Route: 048
     Dates: start: 20191120

REACTIONS (2)
  - Adrenal insufficiency [Not Recovered/Not Resolved]
  - Intestinal obstruction [Recovered/Resolved]

NARRATIVE: CASE EVENT DATE: 20181204
